FAERS Safety Report 22636339 (Version 1)
Quarter: 2023Q2

REPORT INFORMATION
  Report Type: Spontaneous
  Country: MY (occurrence: MY)
  Receive Date: 20230623
  Receipt Date: 20230623
  Transmission Date: 20230721
  Serious: Yes (Disabling, Other)
  Sender: FDA-Public Use
  Company Number: MY-BAYER-2022P019128

PATIENT
  Age: 39 Year
  Sex: Female

DRUGS (1)
  1. MIRENA [Suspect]
     Active Substance: LEVONORGESTREL
     Indication: Contraception
     Dosage: 20?G/DAY
     Route: 015
     Dates: start: 20220214, end: 20221018

REACTIONS (4)
  - Device dislocation [Recovered/Resolved]
  - Ovarian cyst [Recovered/Resolved]
  - Uterine leiomyoma [Recovered/Resolved]
  - Cervical cyst [Recovered/Resolved]

NARRATIVE: CASE EVENT DATE: 20220224
